FAERS Safety Report 5722282-6 (Version None)
Quarter: 2008Q2

REPORT INFORMATION
  Report Type: 
  Country: None (occurrence: None)
  Receive Date: 20080424
  Receipt Date: 20080408
  Transmission Date: 20081010
  Serious: Yes (Hospitalization)
  Sender: FDA-Public Use
  Company Number: JPI-P-003384

PATIENT
  Age: 32 Year
  Sex: Female

DRUGS (3)
  1. LUVOX CR [Suspect]
     Indication: DEPRESSION
     Dosage: 75 MG, 1, D, ORAL
     Route: 048
     Dates: start: 20070105, end: 20070122
  2. LOXOPROFEN SODIUM      (LOXOPROFEN SODIUM) [Suspect]
     Indication: BACK PAIN
     Dosage: ORAL
     Route: 048
     Dates: start: 20070105, end: 20070122
  3. REBAMIPIDE      (REBAMIPIDE) [Suspect]
     Indication: BACK PAIN
     Dosage: ORAL
     Route: 048
     Dates: start: 20070105, end: 20070122

REACTIONS (2)
  - AFFECTIVE DISORDER [None]
  - LIVER DISORDER [None]
